FAERS Safety Report 13381742 (Version 1)
Quarter: 2017Q1

REPORT INFORMATION
  Report Type: Spontaneous
  Country: US (occurrence: US)
  Receive Date: 20170329
  Receipt Date: 20170329
  Transmission Date: 20170429
  Serious: Yes (Life-Threatening, Hospitalization)
  Sender: FDA-Public Use
  Company Number: None

PATIENT
  Age: 35 Year
  Sex: Female
  Weight: 70.65 kg

DRUGS (1)
  1. CIPROFLOXACN [Suspect]
     Active Substance: CIPROFLOXACIN
     Indication: NEPHROLITHIASIS
     Dosage: ?          QUANTITY:1 TABLET(S);?
     Route: 048
     Dates: end: 20170225

REACTIONS (7)
  - Hypertension [None]
  - Oedema [None]
  - Hepatic function abnormal [None]
  - Cardiac failure [None]
  - Dyspnoea [None]
  - Heart rate decreased [None]
  - Renal impairment [None]

NARRATIVE: CASE EVENT DATE: 20170322
